FAERS Safety Report 24421098 (Version 3)
Quarter: 2025Q2

REPORT INFORMATION
  Report Type: Spontaneous
  Country: US (occurrence: US)
  Receive Date: 20241010
  Receipt Date: 20250510
  Transmission Date: 20250717
  Serious: No
  Sender: SANOFI AVENTIS
  Company Number: US-SA-2024SA286706

PATIENT
  Age: 62 Year
  Sex: Female
  Weight: 108.4 kg

DRUGS (10)
  1. KEVZARA [Suspect]
     Active Substance: SARILUMAB
     Indication: Rheumatoid arthritis
     Dosage: 200 MG, QOW
     Route: 058
     Dates: start: 2022
  2. TYLENOL [Concomitant]
     Active Substance: ACETAMINOPHEN
  3. PROBIOTIC 10 [BIFIDOBACTERIUM LACTIS;LACTIPLANTIBACILLUS PLANTARUM;LAC [Concomitant]
  4. VITAMIN D3 [Concomitant]
     Active Substance: CHOLECALCIFEROL
  5. PREDNISONE [Concomitant]
     Active Substance: PREDNISONE
  6. OMEPRAZOLE [Concomitant]
     Active Substance: OMEPRAZOLE
  7. VITAMINS NOS [Concomitant]
     Active Substance: VITAMINS
  8. FLONASE ALLERGY RELIEF [Concomitant]
     Active Substance: FLUTICASONE PROPIONATE
  9. LORATADINE [Concomitant]
     Active Substance: LORATADINE
  10. PEPCID [Concomitant]
     Active Substance: FAMOTIDINE

REACTIONS (6)
  - Pancreatic disorder [Recovering/Resolving]
  - Gallbladder disorder [Unknown]
  - White blood cell count decreased [Unknown]
  - COVID-19 [Unknown]
  - Nasopharyngitis [Recovering/Resolving]
  - Influenza [Unknown]

NARRATIVE: CASE EVENT DATE: 20230701
